FAERS Safety Report 17173455 (Version 1)
Quarter: 2019Q4

REPORT INFORMATION
  Report Type: Spontaneous
  Country: GB (occurrence: GB)
  Receive Date: 20191218
  Receipt Date: 20191218
  Transmission Date: 20200122
  Serious: Yes (Hospitalization, Other)
  Sender: FDA-Public Use
  Company Number: GB-B.I. PHARMACEUTICALS,INC./RIDGEFIELD-2019-12-119847

PATIENT
  Age: 55 Year
  Sex: Female
  Weight: 97 kg

DRUGS (4)
  1. CLOMIPRAMINE [Concomitant]
     Active Substance: CLOMIPRAMINE
     Indication: PRODUCT USED FOR UNKNOWN INDICATION
     Dosage: TOTAL DOSE 110MG TWICE DAILY, INSTALMENTS: DISPENSE WEEKLY
     Route: 065
     Dates: start: 20190910
  2. JARDIANCE [Suspect]
     Active Substance: EMPAGLIFLOZIN
     Indication: PRODUCT USED FOR UNKNOWN INDICATION
     Route: 065
     Dates: start: 20180627, end: 20191121
  3. CLOMIPRAMINE [Concomitant]
     Active Substance: CLOMIPRAMINE
     Dosage: TOTAL DOSE 110MG TWICE DAILY, INSTALMENTS: DISPENSE WEEKLY
     Route: 065
     Dates: start: 20190910
  4. SIMVASTATIN. [Concomitant]
     Active Substance: SIMVASTATIN
     Indication: PRODUCT USED FOR UNKNOWN INDICATION
     Dosage: NIGHTLY, INSTALMENTS: DISPENSE WEEKLY
     Dates: start: 20191009

REACTIONS (3)
  - Vomiting [Unknown]
  - Euglycaemic diabetic ketoacidosis [Recovered/Resolved]
  - Nausea [Unknown]

NARRATIVE: CASE EVENT DATE: 20191119
